FAERS Safety Report 5198970-X (Version None)
Quarter: 2006Q4

REPORT INFORMATION
  Report Type: 
  Country: None (occurrence: None)
  Receive Date: 20060921
  Receipt Date: 20060502
  Transmission Date: 20070319
  Serious: Yes (Other)
  Sender: FDA-Public Use
  Company Number: PHEH2006US05719

PATIENT
  Sex: Female

DRUGS (9)
  1. ZELNORM [Suspect]
     Indication: IMPAIRED GASTRIC EMPTYING
     Dosage: 6 MG, TID, ORAL
     Route: 048
  2. REGLAN [Suspect]
     Indication: IMPAIRED GASTRIC EMPTYING
     Dosage: SEE IMAGE
     Route: 048
     Dates: end: 20060401
  3. REGLAN [Suspect]
     Indication: IMPAIRED GASTRIC EMPTYING
     Dosage: SEE IMAGE
     Route: 048
     Dates: start: 20060401
  4. LORAZEPAM [Concomitant]
  5. SYNTHROID [Concomitant]
  6. LIPITOR [Concomitant]
  7. MODURETIC 5-50 [Concomitant]
  8. NORVASC [Concomitant]
  9. TOPROL-XL [Concomitant]

REACTIONS (5)
  - ANXIETY [None]
  - CRYING [None]
  - DEPRESSION [None]
  - DISTRACTIBILITY [None]
  - FEAR [None]
